FAERS Safety Report 4488563-1 (Version None)
Quarter: 2004Q4

REPORT INFORMATION
  Report Type: 
  Country: None (occurrence: None)
  Receive Date: 20041028
  Receipt Date: 20041028
  Transmission Date: 20050328
  Serious: Yes (Hospitalization)
  Sender: FDA-Public Use
  Company Number: None

PATIENT
  Age: 72 Year
  Sex: Female
  Weight: 78.0187 kg

DRUGS (4)
  1. RITUXAN [Suspect]
     Indication: NON-HODGKIN'S LYMPHOMA
     Dosage: 758 MG Q 4 WK, IV
     Route: 042
     Dates: start: 20041019
  2. FLUDARA [Suspect]
     Indication: NON-HODGKIN'S LYMPHOMA
     Dosage: 50 MG X 3D
     Dates: start: 20041019, end: 20041021
  3. NOVANTRONE [Suspect]
     Dosage: 20 MG X1D
  4. DEXAMETHASONE [Suspect]
     Dosage: 20 MG QD

REACTIONS (7)
  - BLOOD DISORDER [None]
  - BLOOD PRESSURE DIASTOLIC DECREASED [None]
  - DRUG TOXICITY [None]
  - NAUSEA [None]
  - PYREXIA [None]
  - RESPIRATORY RATE INCREASED [None]
  - VOMITING [None]
